FAERS Safety Report 8835691 (Version 1)
Quarter: 2012Q4

REPORT INFORMATION
  Report Type: 
  Country: ES (occurrence: TR)
  Receive Date: 20121011
  Receipt Date: 20121011
  Transmission Date: 20130627
  Serious: Yes (Death)
  Sender: FDA-Public Use
  Company Number: TR-WATSON-2012-17346

PATIENT
  Age: 26 Day
  Sex: Female

DRUGS (1)
  1. SODIUM VALPROATE [Suspect]
     Indication: CONVULSION
     Dosage: 300 mg, single
     Route: 065

REACTIONS (4)
  - Overdose [Fatal]
  - Hyperammonaemia [Fatal]
  - Brain oedema [Fatal]
  - Depressed level of consciousness [Fatal]
